FAERS Safety Report 7310273-3 (Version None)
Quarter: 2011Q1

REPORT INFORMATION
  Report Type: 
  Country: None (occurrence: None)
  Receive Date: 20110224
  Receipt Date: 20110215
  Transmission Date: 20110831
  Serious: Yes (Hospitalization)
  Sender: FDA-Public Use
  Company Number: US-US-EMD SERONO, INC.-7042468

PATIENT
  Sex: Female
  Weight: 136 kg

DRUGS (1)
  1. REBIF [Suspect]
     Indication: MULTIPLE SCLEROSIS
     Route: 058
     Dates: start: 20100929, end: 20110201

REACTIONS (9)
  - DIARRHOEA [None]
  - FALL [None]
  - LUNG DISORDER [None]
  - IMMUNE SYSTEM DISORDER [None]
  - LACERATION [None]
  - ABDOMINAL ADHESIONS [None]
  - BLOOD PRESSURE FLUCTUATION [None]
  - PNEUMONIA [None]
  - OEDEMA PERIPHERAL [None]
